FAERS Safety Report 5395660-5 (Version None)
Quarter: 2007Q3

REPORT INFORMATION
  Report Type: 
  Country: None (occurrence: None)
  Receive Date: 20070724
  Receipt Date: 20070717
  Transmission Date: 20080115
  Serious: Yes (Other)
  Sender: FDA-Public Use
  Company Number: NZ-ROXANE LABORATORIES, INC-2007-BP-17442RO

PATIENT
  Age: 66 Year
  Sex: Male

DRUGS (2)
  1. LEUCOVORIN CALCIUM [Suspect]
     Indication: COLON CANCER STAGE III
     Dosage: 35 MG/WEEK X 30 WEEKS
     Route: 042
  2. FLUOROURACIL [Suspect]
     Indication: COLON CANCER STAGE III
     Dosage: 750 MG/WEEK X 30 WEEKS
     Route: 042

REACTIONS (4)
  - CHOLESTASIS [None]
  - JAUNDICE [None]
  - LIVER DISORDER [None]
  - LIVER FUNCTION TEST ABNORMAL [None]
